FAERS Safety Report 24441966 (Version 2)
Quarter: 2024Q4

REPORT INFORMATION
  Report Type: Spontaneous
  Country: VN (occurrence: VN)
  Receive Date: 20241016
  Receipt Date: 20241017
  Transmission Date: 20250114
  Serious: No
  Sender: ROCHE
  Company Number: VN-ROCHE-3511594

PATIENT
  Age: 67 Month
  Sex: Male

DRUGS (1)
  1. EMICIZUMAB [Suspect]
     Active Substance: EMICIZUMAB
     Indication: Factor VIII deficiency
     Route: 065
     Dates: start: 20230420

REACTIONS (4)
  - Traumatic haemorrhage [Unknown]
  - Multiple injuries [Unknown]
  - Haemorrhage [Unknown]
  - Joint swelling [Unknown]
